FAERS Safety Report 4339113-1 (Version None)
Quarter: 2004Q2

REPORT INFORMATION
  Report Type: 
  Country: None (occurrence: None)
  Receive Date: 20040412
  Receipt Date: 20040330
  Transmission Date: 20050107
  Serious: Yes (Life-Threatening, Other)
  Sender: FDA-Public Use
  Company Number: US-JNJFOC-20040106155

PATIENT
  Age: 36 Year
  Sex: Female
  Weight: 71.6683 kg

DRUGS (4)
  1. REMICADE [Suspect]
     Indication: CROHN'S DISEASE
     Dosage: 5 MG/KG, 1 IN 8 WEEK, INTRAVENOUS
     Route: 042
     Dates: start: 20020601, end: 20020601
  2. REMICADE [Suspect]
     Indication: CROHN'S DISEASE
     Dosage: 5 MG/KG, 1 IN 8 WEEK, INTRAVENOUS
     Route: 042
     Dates: start: 20031201, end: 20031201
  3. IMURAN [Suspect]
     Indication: CROHN'S DISEASE
     Dosage: 100 MG, 1 IN 1 DAY
     Dates: start: 20020515, end: 20040101
  4. ENTOCORT (BUDESONIDE) [Concomitant]

REACTIONS (1)
  - METASTATIC MALIGNANT MELANOMA [None]
